FAERS Safety Report 23403995 (Version 1)
Quarter: 2024Q1

REPORT INFORMATION
  Report Type: Spontaneous
  Country: US (occurrence: US)
  Receive Date: 20240116
  Receipt Date: 20240116
  Transmission Date: 20240410
  Serious: No
  Sender: FDA-Public Use
  Company Number: US-JNJFOC-20240127179

PATIENT
  Age: 65 Year
  Sex: Male

DRUGS (1)
  1. SPRAVATO [Suspect]
     Active Substance: ESKETAMINE
     Indication: Depression
     Dosage: LAST DOSE TAKEN ON 09-JAN-2024

REACTIONS (2)
  - Dizziness [Unknown]
  - Dissociative disorder [Unknown]
